FAERS Safety Report 10714626 (Version 1)
Quarter: 2015Q1

REPORT INFORMATION
  Report Type: Spontaneous
  Country: US (occurrence: US)
  Receive Date: 20150115
  Receipt Date: 20150115
  Transmission Date: 20150721
  Serious: No
  Sender: FDA-Public Use
  Company Number: US-009507513-1412USA008184

PATIENT
  Age: 19 Year
  Weight: 52.15 kg

DRUGS (1)
  1. NEXPLANON [Suspect]
     Active Substance: ETONOGESTREL
     Indication: CONTRACEPTION
     Dosage: UNK
     Route: 059
     Dates: start: 20131008

REACTIONS (4)
  - Cold sweat [Unknown]
  - Abdominal pain [Unknown]
  - Tremor [Unknown]
  - Menorrhagia [Unknown]

NARRATIVE: CASE EVENT DATE: 201412
